FAERS Safety Report 25353273 (Version 1)
Quarter: 2025Q2

REPORT INFORMATION
  Report Type: Report from Study
  Country: US (occurrence: US)
  Receive Date: 20250523
  Receipt Date: 20250523
  Transmission Date: 20250716
  Serious: Yes (Hospitalization)
  Sender: ABBVIE
  Company Number: US-ABBVIE-6293392

PATIENT
  Age: 76 Year
  Sex: Female

DRUGS (2)
  1. RINVOQ [Suspect]
     Active Substance: UPADACITINIB
     Indication: Rheumatoid arthritis
     Route: 048
     Dates: start: 20250315
  2. RINVOQ [Suspect]
     Active Substance: UPADACITINIB

REACTIONS (2)
  - Rectal haemorrhage [Unknown]
  - Rectal fissure [Unknown]

NARRATIVE: CASE EVENT DATE: 20250101
